FAERS Safety Report 8240021-4 (Version None)
Quarter: 2012Q1

REPORT INFORMATION
  Report Type: 
  Country: None (occurrence: None)
  Receive Date: 20120328
  Receipt Date: 20120322
  Transmission Date: 20120608
  Serious: Yes (Hospitalization)
  Sender: FDA-Public Use
  Company Number: US-VERTEX PHARMACEUTICALS INC.-AE-2012-004182

PATIENT
  Sex: Male
  Weight: 129.39 kg

DRUGS (4)
  1. PEGASYS [Concomitant]
     Indication: HEPATITIS C
     Route: 058
     Dates: start: 20111201
  2. RIBAVIRIN [Concomitant]
     Indication: HEPATITIS C
     Route: 048
     Dates: start: 20111201, end: 20120320
  3. RIBAVIRIN [Concomitant]
     Route: 048
     Dates: start: 20120320
  4. INCIVEK [Suspect]
     Indication: HEPATITIS C
     Route: 048
     Dates: start: 20111201

REACTIONS (3)
  - DRUG DOSE OMISSION [None]
  - WEIGHT INCREASED [None]
  - GENERALISED OEDEMA [None]
